FAERS Safety Report 25064752 (Version 1)
Quarter: 2025Q1

REPORT INFORMATION
  Report Type: Spontaneous
  Country: US (occurrence: US)
  Receive Date: 20250311
  Receipt Date: 20250311
  Transmission Date: 20250408
  Serious: No
  Sender: Unknown Manufacturer
  Company Number: US-NEURELIS, INC.-2024NEU000002

PATIENT
  Sex: Female
  Weight: 97.506 kg

DRUGS (5)
  1. VALTOCO [Suspect]
     Active Substance: DIAZEPAM
     Indication: Seizure
     Dosage: 20 MILLIGRAM, QWEEK
     Route: 045
  2. CLONAZEPAM [Concomitant]
     Active Substance: CLONAZEPAM
     Indication: Petit mal epilepsy
  3. DEPAKOTE [Concomitant]
     Active Substance: DIVALPROEX SODIUM
     Indication: Petit mal epilepsy
  4. LAMICTAL [Concomitant]
     Active Substance: LAMOTRIGINE
     Indication: Petit mal epilepsy
  5. CLOBAZAM [Concomitant]
     Active Substance: CLOBAZAM
     Indication: Petit mal epilepsy

REACTIONS (1)
  - Drug ineffective [Unknown]
